FAERS Safety Report 15553558 (Version 1)
Quarter: 2018Q4

REPORT INFORMATION
  Report Type: Spontaneous
  Country: US (occurrence: US)
  Receive Date: 20181026
  Receipt Date: 20181026
  Transmission Date: 20190205
  Serious: No
  Sender: FDA-Public Use
  Company Number: US-ASTRAZENECA-2018SF27980

PATIENT
  Age: 20148 Day
  Sex: Female
  Weight: 87.1 kg

DRUGS (2)
  1. BYDUREON [Suspect]
     Active Substance: EXENATIDE
     Indication: TYPE 2 DIABETES MELLITUS
     Route: 058
  2. BYDUREON BCISE [Suspect]
     Active Substance: EXENATIDE
     Indication: TYPE 2 DIABETES MELLITUS
     Route: 058

REACTIONS (5)
  - Circumstance or information capable of leading to medication error [Not Recovered/Not Resolved]
  - Device leakage [Unknown]
  - Needle issue [Not Recovered/Not Resolved]
  - Device malfunction [Unknown]
  - Daydreaming [Not Recovered/Not Resolved]

NARRATIVE: CASE EVENT DATE: 20180926
